FAERS Safety Report 23391831 (Version 2)
Quarter: 2024Q1

REPORT INFORMATION
  Report Type: Spontaneous
  Country: CH (occurrence: CH)
  Receive Date: 20240111
  Receipt Date: 20240112
  Transmission Date: 20240409
  Serious: Yes (Other)
  Sender: FDA-Public Use
  Company Number: CH-TEVA-VS-3141004

PATIENT

DRUGS (3)
  1. PACLITAXEL [Suspect]
     Active Substance: PACLITAXEL
     Indication: Product used for unknown indication
     Dosage: ON DAYS 1,8 AND 15, EVERY 4 WEEKS
     Route: 042
  2. CISPLATIN [Suspect]
     Active Substance: CISPLATIN
     Indication: Product used for unknown indication
     Route: 065
     Dates: start: 20220509, end: 20220628
  3. ERBITUX [Suspect]
     Active Substance: CETUXIMAB
     Indication: Product used for unknown indication
     Dosage: ON DAYS 1,8 AND 15,22
     Route: 042

REACTIONS (3)
  - Neutropenia [Unknown]
  - Mucosal inflammation [Unknown]
  - Off label use [Unknown]
